FAERS Safety Report 6130720-2 (Version None)
Quarter: 2009Q1

REPORT INFORMATION
  Report Type: 
  Country: None (occurrence: None)
  Receive Date: 20090323
  Receipt Date: 20090213
  Transmission Date: 20090719
  Serious: Yes (Other)
  Sender: FDA-Public Use
  Company Number: 2009EU001081

PATIENT
  Age: 61 Year

DRUGS (4)
  1. TACROLIMUS [Suspect]
     Indication: STEM CELL TRANSPLANT
     Dosage: /D
  2. EVEROLIMUS [Suspect]
     Indication: STEM CELL TRANSPLANT
     Dosage: 1.5 MG, /D, ORAL
     Route: 048
  3. BUSULFAN (BUSULFAN) [Concomitant]
  4. FLUDARABINE (FLUDARABINE PHOSPHATE) [Concomitant]

REACTIONS (2)
  - REFRACTORY ANAEMIA WITH AN EXCESS OF BLASTS [None]
  - THROMBOTIC MICROANGIOPATHY [None]
